FAERS Safety Report 8032182-7 (Version None)
Quarter: 2012Q1

REPORT INFORMATION
  Report Type: 
  Country: None (occurrence: None)
  Receive Date: 20120110
  Receipt Date: 20120105
  Transmission Date: 20120608
  Serious: Yes (Hospitalization)
  Sender: FDA-Public Use
  Company Number: US-BIOGENIDEC-204057

PATIENT
  Age: 53 Year
  Sex: Female
  Weight: 80 kg

DRUGS (5)
  1. AVONEX [Suspect]
     Route: 030
     Dates: start: 20091030
  2. AVONEX [Suspect]
     Route: 030
     Dates: start: 20041115, end: 20050216
  3. IBUPROFEN (ADVIL) [Concomitant]
     Indication: PRODUCT USED FOR UNKNOWN INDICATION
  4. AVONEX [Suspect]
     Indication: MULTIPLE SCLEROSIS
     Route: 030
     Dates: start: 20000215, end: 20041011
  5. TRILEPTAL [Concomitant]
     Indication: TRIGEMINAL NEURALGIA

REACTIONS (12)
  - BREAST CANCER IN SITU [None]
  - BREAST CANCER [None]
  - CYST [None]
  - ANXIETY [None]
  - URTICARIA [None]
  - THYROID DISORDER [None]
  - CHEST DISCOMFORT [None]
  - PAIN [None]
  - BASEDOW'S DISEASE [None]
  - BREAST HAEMORRHAGE [None]
  - NASOPHARYNGITIS [None]
  - DYSPNOEA [None]
